FAERS Safety Report 8384108-4 (Version None)
Quarter: 2012Q2

REPORT INFORMATION
  Report Type: 
  Country: None (occurrence: None)
  Receive Date: 20120524
  Receipt Date: 20120522
  Transmission Date: 20120825
  Serious: Yes (Other)
  Sender: FDA-Public Use
  Company Number: CZ-ROCHE-1071473

PATIENT
  Age: 69 Year
  Sex: Female

DRUGS (5)
  1. MABTHERA [Suspect]
     Indication: B-CELL LYMPHOMA
     Route: 042
     Dates: start: 20120517, end: 20120517
  2. PREDNISONE [Concomitant]
     Indication: B-CELL LYMPHOMA
  3. VINCRISTINE [Concomitant]
     Indication: B-CELL LYMPHOMA
  4. CYTOXAN [Concomitant]
     Indication: B-CELL LYMPHOMA
  5. EPIRUBICIN [Concomitant]
     Indication: B-CELL LYMPHOMA

REACTIONS (5)
  - PYREXIA [None]
  - TACHYCARDIA [None]
  - TREMOR [None]
  - HYPERSENSITIVITY [None]
  - FLUSHING [None]
